FAERS Safety Report 12722714 (Version 5)
Quarter: 2018Q4

REPORT INFORMATION
  Report Type: Spontaneous
  Country: US (occurrence: US)
  Receive Date: 20160907
  Receipt Date: 20181019
  Transmission Date: 20190204
  Serious: Yes (Hospitalization)
  Sender: FDA-Public Use
  Company Number: US-TEIKOKU PHARMA USA-TPU2016-00589

PATIENT
  Age: 75 Year
  Sex: Female
  Weight: 85.35 kg

DRUGS (1)
  1. LIDODERM [Suspect]
     Active Substance: LIDOCAINE
     Indication: HERPES ZOSTER
     Route: 061

REACTIONS (5)
  - Inappropriate schedule of product administration [Unknown]
  - Product storage error [Not Recovered/Not Resolved]
  - Therapy cessation [Not Recovered/Not Resolved]
  - Lung infection [Recovering/Resolving]
  - Pain [Not Recovered/Not Resolved]

NARRATIVE: CASE EVENT DATE: 201607
